FAERS Safety Report 12080538 (Version 1)
Quarter: 2016Q1

REPORT INFORMATION
  Report Type: Spontaneous
  Country: US (occurrence: None)
  Receive Date: 20160212
  Receipt Date: 20160212
  Transmission Date: 20160526
  Serious: Yes (Life-Threatening, Hospitalization)
  Sender: FDA-Public Use
  Company Number: None

PATIENT
  Age: 60 Year
  Sex: Male
  Weight: 90.72 kg

DRUGS (1)
  1. BACTRIM [Suspect]
     Active Substance: SULFAMETHOXAZOLE\TRIMETHOPRIM
     Indication: BENIGN PROSTATIC HYPERPLASIA
     Dates: start: 20111129, end: 20111206

REACTIONS (4)
  - Drug hypersensitivity [None]
  - Chills [None]
  - Pyrexia [None]
  - Acute kidney injury [None]

NARRATIVE: CASE EVENT DATE: 20111203
